FAERS Safety Report 10616076 (Version 4)
Quarter: 2015Q1

REPORT INFORMATION
  Report Type: Report from Study
  Country: CA (occurrence: CA)
  Receive Date: 20141201
  Receipt Date: 20150224
  Transmission Date: 20150720
  Serious: Yes (Hospitalization)
  Sender: FDA-Public Use
  Company Number: PHHY2014CA092889

PATIENT
  Age: 73 Year
  Sex: Male

DRUGS (4)
  1. METFORMIN [Concomitant]
     Active Substance: METFORMIN HYDROCHLORIDE
     Indication: PRODUCT USED FOR UNKNOWN INDICATION
     Route: 065
  2. CALCIUM [Concomitant]
     Active Substance: CALCIUM
     Indication: PRODUCT USED FOR UNKNOWN INDICATION
     Route: 065
  3. GLEEVEC [Suspect]
     Active Substance: IMATINIB MESYLATE
     Indication: GASTROINTESTINAL STROMAL TUMOUR
     Dosage: 400 MG, QD
     Route: 048
     Dates: start: 20140527
  4. LEVOTHYROXINE [Concomitant]
     Active Substance: LEVOTHYROXINE
     Indication: HORMONE REPLACEMENT THERAPY
     Route: 065

REACTIONS (10)
  - Localised infection [Recovering/Resolving]
  - Peripheral swelling [Unknown]
  - Dysgeusia [Not Recovered/Not Resolved]
  - Skin ulcer [Unknown]
  - Vomiting [Unknown]
  - Cholelithiasis [Recovering/Resolving]
  - Erythema [Unknown]
  - Rash generalised [Unknown]
  - Abdominal pain [Unknown]
  - Chromaturia [Recovering/Resolving]

NARRATIVE: CASE EVENT DATE: 20140704
